FAERS Safety Report 10713904 (Version 2)
Quarter: 2015Q1

REPORT INFORMATION
  Report Type: Spontaneous
  Country: DE (occurrence: DE)
  Receive Date: 20150115
  Receipt Date: 20150116
  Transmission Date: 20150721
  Serious: Yes (Other)
  Sender: FDA-Public Use
  Company Number: PHHY2015DE001645

PATIENT
  Age: 35 Year
  Sex: Female

DRUGS (4)
  1. BROMAZEPAM [Suspect]
     Active Substance: BROMAZEPAM
     Indication: STRESS
     Dosage: 6 MG, QD
     Route: 048
     Dates: start: 20140307, end: 20141118
  2. L-THYROXINE//LEVOTHYROXINE [Concomitant]
     Indication: HYPOTHYROIDISM
     Dosage: 1 DF, QD (50 UG)
     Route: 048
     Dates: start: 20140307, end: 20141118
  3. RITALIN [Suspect]
     Active Substance: METHYLPHENIDATE HYDROCHLORIDE
     Indication: NARCOLEPSY
     Dosage: 60 MG, QD
     Route: 048
     Dates: start: 20140307, end: 20141118
  4. CITALOPRAM [Suspect]
     Active Substance: CITALOPRAM HYDROBROMIDE
     Indication: STRESS
     Dosage: 60 MG, QD
     Route: 048
     Dates: start: 20140307, end: 20141118

REACTIONS (1)
  - Pre-eclampsia [Recovered/Resolved]
